FAERS Safety Report 24277189 (Version 1)
Quarter: 2024Q3

REPORT INFORMATION
  Report Type: Report from Study
  Country: US (occurrence: US)
  Receive Date: 20240903
  Receipt Date: 20240903
  Transmission Date: 20241017
  Serious: Yes (Other)
  Sender: NOVARTIS
  Company Number: US-002147023-NVSC2024US167944

PATIENT
  Age: 64 Year
  Sex: Female

DRUGS (3)
  1. COSENTYX [Suspect]
     Active Substance: SECUKINUMAB
     Indication: Psoriasis
     Dosage: UNK (5 COSENTYX LOADING DOSES)
     Route: 065
     Dates: end: 20240805
  2. COSENTYX [Suspect]
     Active Substance: SECUKINUMAB
     Dosage: 150 MG, QW
     Route: 058
     Dates: start: 20240722, end: 20240827
  3. COSENTYX [Suspect]
     Active Substance: SECUKINUMAB
     Dosage: 300 MG, QMO
     Route: 058

REACTIONS (6)
  - Drug hypersensitivity [Not Recovered/Not Resolved]
  - Blister [Unknown]
  - Urticaria [Unknown]
  - COVID-19 [Unknown]
  - Nasal congestion [Unknown]
  - Acne [Unknown]

NARRATIVE: CASE EVENT DATE: 20240823
